FAERS Safety Report 11061565 (Version 1)
Quarter: 2015Q2

REPORT INFORMATION
  Report Type: Spontaneous
  Country: US (occurrence: US)
  Receive Date: 20150424
  Receipt Date: 20150424
  Transmission Date: 20150821
  Serious: No
  Sender: FDA-Public Use
  Company Number: US-PFIZER INC-2015139508

PATIENT
  Age: 40 Year
  Sex: Male

DRUGS (24)
  1. PROMETHAZINE [Concomitant]
     Active Substance: PROMETHAZINE\PROMETHAZINE HYDROCHLORIDE
     Indication: NAUSEA
     Dosage: 12.5 MG TAB BY MOUTH EVERY 4 HOURS AS NEEDED
     Route: 048
  2. ZOLPIDEM [Concomitant]
     Active Substance: ZOLPIDEM\ZOLPIDEM TARTRATE
     Indication: RHEUMATOID ARTHRITIS
  3. SENNOSIDES. [Concomitant]
     Active Substance: SENNOSIDES
     Indication: CONSTIPATION
     Dosage: 8.6 MG BY MOUTH DAILY AS NEEDED
     Route: 048
  4. ENBREL [Concomitant]
     Active Substance: ETANERCEPT
     Indication: RHEUMATOID ARTHRITIS
     Dosage: 50 MG/ML, WEEKLY (ONCE WEEKLY)
     Route: 058
  5. LYRICA [Suspect]
     Active Substance: PREGABALIN
     Indication: FIBROMYALGIA
     Dosage: 75 MG, 2X/DAY
     Route: 048
  6. LYRICA [Suspect]
     Active Substance: PREGABALIN
     Dosage: 150 MG, 2X/DAY
  7. LIDOCAINE. [Concomitant]
     Active Substance: LIDOCAINE
     Indication: RHEUMATOID ARTHRITIS
     Dosage: 5% PATCHES, APPLY PATCH TO AFFECTED AREA (12HRS ON/OFF)
     Route: 062
  8. FIORICET [Concomitant]
     Active Substance: ACETAMINOPHEN\BUTALBITAL\CAFFEINE
     Indication: PAIN
     Dosage: 1 DF, AS NEEDED (BUTALBITAL 50MG, CAFFEINE 40MG, PARACETAMOL 300MG)
     Route: 048
  9. FIORICET [Concomitant]
     Active Substance: ACETAMINOPHEN\BUTALBITAL\CAFFEINE
     Indication: TENSION HEADACHE
  10. OXYCODONE [Concomitant]
     Active Substance: OXYCODONE
     Indication: FIBROMYALGIA
     Dosage: 15 MGEVERY 4 HOURS AS NEEDED
  11. D-AMPHETAMINE SALT COMBO [Concomitant]
     Active Substance: AMPHETAMINE ASPARTATE\AMPHETAMINE SULFATE\DEXTROAMPHETAMINE SACCHARATE\DEXTROAMPHETAMINE SULFATE
     Indication: ATTENTION DEFICIT/HYPERACTIVITY DISORDER
  12. OXYCODONE [Concomitant]
     Active Substance: OXYCODONE
     Indication: RHEUMATOID ARTHRITIS
  13. D-AMPHETAMINE SALT COMBO [Concomitant]
     Active Substance: AMPHETAMINE ASPARTATE\AMPHETAMINE SULFATE\DEXTROAMPHETAMINE SACCHARATE\DEXTROAMPHETAMINE SULFATE
     Indication: FIBROMYALGIA
     Dosage: 30 MG, 2 TABS BY MOUTH DAILY AT 8 AM AND 1 AT 1 PM
     Route: 048
  14. DIAZEPAM. [Concomitant]
     Active Substance: DIAZEPAM
     Indication: ANXIETY DISORDER
     Dosage: 10 MG, 2X/DAY (TWICE A DAY)
     Route: 048
  15. D-AMPHETAMINE SALT COMBO [Concomitant]
     Active Substance: AMPHETAMINE ASPARTATE\AMPHETAMINE SULFATE\DEXTROAMPHETAMINE SACCHARATE\DEXTROAMPHETAMINE SULFATE
     Indication: RHEUMATOID ARTHRITIS
  16. POLYETHYLENE GLYCOL 3350. [Concomitant]
     Active Substance: POLYETHYLENE GLYCOL 3350
     Indication: CONSTIPATION
     Dosage: 1 DF, 1X/DAY (ONCE DAILY)
  17. BISACODYL. [Concomitant]
     Active Substance: BISACODYL
     Indication: CONSTIPATION
     Dosage: 10 MG, DAILY (ONCE DAILY)
  18. OXYCODONE [Concomitant]
     Active Substance: OXYCODONE
     Indication: PAIN
  19. METHOCARBAMOL. [Concomitant]
     Active Substance: METHOCARBAMOL
     Indication: FIBROMYALGIA
     Dosage: 500 MG, 3X/DAY
     Route: 048
  20. D-AMPHETAMINE SALT COMBO [Concomitant]
     Active Substance: AMPHETAMINE ASPARTATE\AMPHETAMINE SULFATE\DEXTROAMPHETAMINE SACCHARATE\DEXTROAMPHETAMINE SULFATE
     Indication: FATIGUE
  21. ZOLPIDEM [Concomitant]
     Active Substance: ZOLPIDEM\ZOLPIDEM TARTRATE
     Indication: SLEEP DISORDER
     Dosage: 5 MG, 1X/DAY
     Route: 048
  22. ZOLPIDEM [Concomitant]
     Active Substance: ZOLPIDEM\ZOLPIDEM TARTRATE
     Indication: FIBROMYALGIA
  23. CELEBREX [Suspect]
     Active Substance: CELECOXIB
     Indication: RHEUMATOID ARTHRITIS
     Dosage: 200 MG, 2X/DAY
     Route: 048
  24. GENERLAC [Concomitant]
     Active Substance: LACTULOSE
     Indication: CONSTIPATION
     Dosage: 10GM/15ML SOLUTION, TAKE 30 ML BY MOUTH DAILY AS NEEDED
     Route: 048

REACTIONS (1)
  - Drug ineffective [Unknown]
